FAERS Safety Report 4330679-4 (Version None)
Quarter: 2004Q1

REPORT INFORMATION
  Report Type: 
  Country: None (occurrence: None)
  Receive Date: 20040329
  Receipt Date: 20040302
  Transmission Date: 20041129
  Serious: No
  Sender: FDA-Public Use
  Company Number: PHFR2003GB04316

PATIENT
  Sex: Male

DRUGS (1)
  1. BACLOFEN [Suspect]
     Dosage: INTRATHECAL
     Route: 037

REACTIONS (2)
  - CHOLELITHIASIS [None]
  - HEPATITIS ACUTE [None]
